FAERS Safety Report 6040244-9 (Version None)
Quarter: 2009Q1

REPORT INFORMATION
  Report Type: 
  Country: None (occurrence: None)
  Receive Date: 20090116
  Receipt Date: 20080306
  Transmission Date: 20090719
  Serious: No
  Sender: FDA-Public Use
  Company Number: US-BRISTOL-MYERS SQUIBB COMPANY-14053219

PATIENT
  Age: 22 Year
  Sex: Female

DRUGS (4)
  1. ABILIFY [Suspect]
     Indication: SCHIZOAFFECTIVE DISORDER
     Route: 048
     Dates: start: 20050206
  2. ABILIFY [Suspect]
     Indication: BIPOLAR DISORDER
     Route: 048
     Dates: start: 20050206
  3. ABILIFY [Suspect]
     Indication: DELUSION
     Route: 048
     Dates: start: 20050206
  4. FLUOXETINE [Concomitant]
     Dates: start: 20031011

REACTIONS (1)
  - GAZE PALSY [None]
